FAERS Safety Report 22218142 (Version 1)
Quarter: 2023Q2

REPORT INFORMATION
  Report Type: Spontaneous
  Country: US (occurrence: None)
  Receive Date: 20230414
  Receipt Date: 20230414
  Transmission Date: 20230722
  Serious: Yes (Other)
  Sender: FDA-Public Use
  Company Number: None

PATIENT
  Age: 49 Year
  Sex: 0

DRUGS (2)
  1. AMBRISENTAN [Suspect]
     Active Substance: AMBRISENTAN
     Indication: Pulmonary hypertension
     Dosage: FREQUENCY : DAILY;?
     Route: 048
     Dates: start: 20190717
  2. AMBRISENTAN [Concomitant]
     Active Substance: AMBRISENTAN
     Dates: start: 20190717

REACTIONS (2)
  - Ear infection [None]
  - Malaise [None]

NARRATIVE: CASE EVENT DATE: 20230414
